FAERS Safety Report 7206100-5 (Version None)
Quarter: 2010Q4

REPORT INFORMATION
  Report Type: 
  Country: None (occurrence: None)
  Receive Date: 20101229
  Receipt Date: 20101229
  Transmission Date: 20110411
  Serious: Yes (Other)
  Sender: FDA-Public Use
  Company Number: None

PATIENT
  Age: 47 Year
  Sex: Male
  Weight: 90.7194 kg

DRUGS (2)
  1. OXYCONTIN [Suspect]
     Indication: ARTHRITIS REACTIVE
     Dosage: 40MG TWICE DAILEY PO
     Route: 048
     Dates: start: 20070101, end: 20101110
  2. OXYCONTIN [Suspect]
     Indication: FIBROMYALGIA
     Dosage: 40MG TWICE DAILEY PO
     Route: 048
     Dates: start: 20070101, end: 20101110

REACTIONS (10)
  - ARTHRALGIA [None]
  - DRUG TOXICITY [None]
  - DRUG WITHDRAWAL SYNDROME [None]
  - GASTROINTESTINAL DISORDER [None]
  - HYPERSENSITIVITY [None]
  - INADEQUATE ANALGESIA [None]
  - MENTAL DISORDER [None]
  - NAUSEA [None]
  - PRODUCT FORMULATION ISSUE [None]
  - PYREXIA [None]
